FAERS Safety Report 20119301 (Version 1)
Quarter: 2021Q4

REPORT INFORMATION
  Report Type: Spontaneous
  Country: US (occurrence: US)
  Receive Date: 20211126
  Receipt Date: 20211126
  Transmission Date: 20220303
  Serious: No
  Sender: FDA-Public Use
  Company Number: US-VERTEX PHARMACEUTICALS-2021-018314

PATIENT
  Age: 37 Year
  Sex: Male
  Weight: 78 kg

DRUGS (4)
  1. TRIKAFTA [Interacting]
     Active Substance: ELEXACAFTOR\IVACAFTOR\TEZACAFTOR
     Indication: Cystic fibrosis
     Dosage: FULL DOSE
     Route: 048
     Dates: start: 202001
  2. TRIKAFTA [Interacting]
     Active Substance: ELEXACAFTOR\IVACAFTOR\TEZACAFTOR
     Dosage: ORANGE TAB AM, EACH DAY
     Route: 048
  3. TRIKAFTA [Interacting]
     Active Substance: ELEXACAFTOR\IVACAFTOR\TEZACAFTOR
     Dosage: 2 ORANGE TABS AM ALTERNATING WITH 1 BLUE TAB AM (NO DOSE IN EVENING)
     Route: 048
     Dates: start: 20211117
  4. DILTIAZEM [Interacting]
     Active Substance: DILTIAZEM
     Route: 065

REACTIONS (6)
  - Productive cough [Recovering/Resolving]
  - Drug interaction [Recovering/Resolving]
  - Respiratory symptom [Unknown]
  - Malaise [Recovering/Resolving]
  - Anxiety [Unknown]
  - Abdominal discomfort [Unknown]

NARRATIVE: CASE EVENT DATE: 20211101
